FAERS Safety Report 8344221-4 (Version None)
Quarter: 2012Q2

REPORT INFORMATION
  Report Type: 
  Country: None (occurrence: None)
  Receive Date: 20120508
  Receipt Date: 20080627
  Transmission Date: 20120825
  Serious: No
  Sender: FDA-Public Use
  Company Number: US-TEVA-US023975

PATIENT
  Sex: Female
  Weight: 95 kg

DRUGS (3)
  1. PREVACID [Concomitant]
     Indication: GASTROOESOPHAGEAL REFLUX DISEASE
     Dosage: 30 MILLIGRAM;
     Route: 048
     Dates: start: 19980101
  2. TREANDA [Suspect]
     Indication: CHRONIC LYMPHOCYTIC LEUKAEMIA
     Dosage: DAYS 2 AND 3, CYCLE TO BE REPEATED Q 28 DAYS
     Route: 042
     Dates: start: 20080610, end: 20080612
  3. RITUXAN [Concomitant]
     Indication: CHRONIC LYMPHOCYTIC LEUKAEMIA
     Dosage: DAY 1, CYCLE TO BE REPEATED Q 28 DAYS
     Route: 042
     Dates: start: 20080609

REACTIONS (2)
  - STOMATITIS [None]
  - ABDOMINAL PAIN [None]
